APPROVED DRUG PRODUCT: TELMISARTAN
Active Ingredient: TELMISARTAN
Strength: 40MG
Dosage Form/Route: TABLET;ORAL
Application: A204164 | Product #002 | TE Code: AB
Applicant: JUBILANT GENERICS LTD
Approved: Aug 22, 2016 | RLD: No | RS: No | Type: RX